FAERS Safety Report 4402241-6 (Version None)
Quarter: 2004Q3

REPORT INFORMATION
  Report Type: 
  Country: None (occurrence: None)
  Receive Date: 20040716
  Receipt Date: 20040706
  Transmission Date: 20050211
  Serious: Yes (Life-Threatening, Hospitalization)
  Sender: FDA-Public Use
  Company Number: HQWYE892706JUL04

PATIENT
  Age: 81 Year
  Sex: Female

DRUGS (11)
  1. AMIODARONE HCL [Suspect]
     Indication: VENTRICULAR TACHYCARDIA
     Dosage: 200 MG 2X PER 1 DAY ORAL; 100 MG 2X PER 1 DAY ORAL
     Route: 048
     Dates: start: 20040402, end: 20040415
  2. AMIODARONE HCL [Suspect]
     Indication: VENTRICULAR TACHYCARDIA
     Dosage: 200 MG 2X PER 1 DAY ORAL; 100 MG 2X PER 1 DAY ORAL
     Route: 048
     Dates: start: 20040416, end: 20040418
  3. DIGOXIN [Suspect]
     Indication: CARDIAC FAILURE
     Dosage: 125 UG 1X PER 1 DAY ORAL
     Route: 048
     Dates: end: 20040418
  4. DIGOXIN [Suspect]
     Indication: MITRAL VALVE INCOMPETENCE
     Dosage: 125 UG 1X PER 1 DAY ORAL
     Route: 048
     Dates: end: 20040418
  5. MERCAZOLE (THIAMAZOLE) [Concomitant]
  6. LASIX [Concomitant]
  7. ENALAPRIL MALEATE [Concomitant]
  8. ISOSORBIDE DINITRATE [Concomitant]
  9. MAGNESIUM OXIDE (MAGNESIUM OXIDE) [Concomitant]
  10. LENDORMIN (EROTIZOLAM) [Concomitant]
  11. MARZULENE (SODIUM GUALENATE) [Concomitant]

REACTIONS (5)
  - DRUG INTERACTION [None]
  - HYPOTHYROIDISM [None]
  - NODAL RHYTHM [None]
  - SINUS BRADYCARDIA [None]
  - THERAPEUTIC AGENT TOXICITY [None]
